FAERS Safety Report 5271904-5 (Version None)
Quarter: 2007Q1

REPORT INFORMATION
  Report Type: 
  Country: None (occurrence: None)
  Receive Date: 20070319
  Receipt Date: 20070312
  Transmission Date: 20070707
  Serious: Yes (Hospitalization)
  Sender: FDA-Public Use
  Company Number: 163-20785-07030612

PATIENT
  Age: 86 Year
  Sex: Female

DRUGS (5)
  1. THALOMID [Suspect]
     Indication: MULTIPLE MYELOMA
     Dosage: 100 MG, 1 IN 1 D, ORAL
     Route: 048
     Dates: start: 20061204
  2. SODIUM BICARBONATE IN PLASTIC CONTAINER [Concomitant]
  3. CELEXA [Concomitant]
  4. AMBIEN [Concomitant]
  5. DIOVAN [Concomitant]

REACTIONS (3)
  - GALLBLADDER DISORDER [None]
  - INSOMNIA [None]
  - PRURITUS [None]
